FAERS Safety Report 8118412-1 (Version None)
Quarter: 2012Q1

REPORT INFORMATION
  Report Type: 
  Country: None (occurrence: None)
  Receive Date: 20120207
  Receipt Date: 20120127
  Transmission Date: 20120608
  Serious: Yes (Hospitalization, Congenital Anomaly, Other)
  Sender: FDA-Public Use
  Company Number: DE-PFIZER INC-2012029218

PATIENT
  Age: 28 Day
  Sex: Male
  Weight: 3.96 kg

DRUGS (4)
  1. AVELOX [Concomitant]
     Indication: NASOPHARYNGITIS
     Dosage: UNK
     Route: 064
     Dates: start: 20110201, end: 20110228
  2. XIPAMIDE [Suspect]
     Indication: OEDEMA
     Dosage: 10 MG, 1X/DAY
     Route: 064
     Dates: start: 20110115, end: 20110415
  3. FOLIC ACID [Concomitant]
     Indication: VITAMIN SUPPLEMENTATION
     Dosage: 0.4 MG, 1X/DAY
     Route: 064
     Dates: start: 20110505, end: 20110505
  4. RAMIPRIL [Suspect]
     Indication: HYPERTENSION
     Dosage: 2.5 MG, 1X/DAY
     Route: 064
     Dates: start: 20101228, end: 20110315

REACTIONS (2)
  - MATERNAL EXPOSURE TIMING UNSPECIFIED [None]
  - FALLOT'S TETRALOGY [None]
